FAERS Safety Report 7405976-6 (Version None)
Quarter: 2011Q2

REPORT INFORMATION
  Report Type: 
  Country: None (occurrence: None)
  Receive Date: 20110411
  Receipt Date: 20100208
  Transmission Date: 20111010
  Serious: No
  Sender: FDA-Public Use
  Company Number: US-BAYER-201014305NA

PATIENT
  Age: 37 Year
  Sex: Female
  Weight: 60 kg

DRUGS (1)
  1. MIRENA [Suspect]
     Indication: CONTRACEPTION
     Dosage: 20 ?G/D, CONT
     Route: 015
     Dates: start: 20091012, end: 20100119

REACTIONS (11)
  - BACK PAIN [None]
  - HEADACHE [None]
  - DISCOMFORT [None]
  - ABDOMINAL PAIN [None]
  - MUSCLE SPASMS [None]
  - ABDOMINAL DISTENSION [None]
  - POST PROCEDURAL HAEMORRHAGE [None]
  - FATIGUE [None]
  - DIZZINESS [None]
  - VAGINAL HAEMORRHAGE [None]
  - NAUSEA [None]
